FAERS Safety Report 20912805 (Version 2)
Quarter: 2022Q2

REPORT INFORMATION
  Report Type: Spontaneous
  Country: JP (occurrence: JP)
  Receive Date: 20220603
  Receipt Date: 20220608
  Transmission Date: 20220720
  Serious: Yes (Hospitalization, Other)
  Sender: FDA-Public Use
  Company Number: JP-SCALL-2022-JP-000199

PATIENT
  Age: 66 Year
  Sex: Male

DRUGS (1)
  1. DUTASTERIDE [Suspect]
     Active Substance: DUTASTERIDE
     Indication: Product used for unknown indication
     Route: 050

REACTIONS (3)
  - Neoplasm malignant [Unknown]
  - Dysphagia [Unknown]
  - Product use issue [Unknown]
